FAERS Safety Report 20847427 (Version 3)
Quarter: 2023Q2

REPORT INFORMATION
  Report Type: Spontaneous
  Country: GB (occurrence: GB)
  Receive Date: 20220519
  Receipt Date: 20230514
  Transmission Date: 20230722
  Serious: Yes (Hospitalization, Other)
  Sender: FDA-Public Use
  Company Number: None

PATIENT
  Age: 10 Year
  Sex: Female

DRUGS (17)
  1. ELEXACAFTOR\IVACAFTOR\TEZACAFTOR [Suspect]
     Active Substance: ELEXACAFTOR\IVACAFTOR\TEZACAFTOR
     Indication: Cystic fibrosis
     Dosage: 75MG/50MG/100MG.
     Route: 050
  2. LINEZOLID [Suspect]
     Active Substance: LINEZOLID
     Dosage: 900MG A DAY IN 3 SEPARATED DOSES
     Dates: end: 20220429
  3. OMEPRAZOLE [Suspect]
     Active Substance: OMEPRAZOLE
     Dosage: 40MG A DAY IN 2 SEPARATED DOSES
  4. AMIKACIN [Concomitant]
     Active Substance: AMIKACIN
     Dosage: 1000MG A DAY IN 2 SEPARATED DOSES
  5. BEDAQUILINE [Concomitant]
     Active Substance: BEDAQUILINE
     Dosage: 600MG A WEEK IN 3 SEPARATED DOSES
  6. BECLOMETHASONE DIPROPIONATE [Concomitant]
     Active Substance: BECLOMETHASONE DIPROPIONATE
     Dosage: 200MG A DAY PUFFS. VIA SPACER. 2 SEPARATED DOSES
     Route: 055
  7. CHOLECALCIFEROL [Concomitant]
     Active Substance: CHOLECALCIFEROL
     Route: 048
  8. CREON [Concomitant]
     Active Substance: PANCRELIPASE AMYLASE\PANCRELIPASE LIPASE\PANCRELIPASE PROTEASE
     Dosage: WITH MEALS AND SNACKS AS DIRECTED BY DIETICIAN.
     Route: 048
  9. CYPROHEPTADINE [Concomitant]
     Active Substance: CYPROHEPTADINE
     Dosage: 1/2 DAILY.
     Route: 048
  10. CHOLECALCIFEROL [Concomitant]
     Active Substance: CHOLECALCIFEROL
     Route: 048
  11. INSULIN ASPART [Concomitant]
     Active Substance: INSULIN ASPART
     Dosage: AS DIRECTED BY DIABETES TEAM. ON MONDAYS, WEDNESDAYS AND FRIDAYS
     Route: 058
  12. MENADIOL [Concomitant]
     Active Substance: MENADIOL
     Dosage: 10MG A DAY ON MONDAYS, WEDNESDAYS AND FRIDAYS.
     Route: 048
  13. PYRIDOXINE [Concomitant]
     Active Substance: PYRIDOXINE
  14. SODIUM CHLORIDE [Concomitant]
     Active Substance: SODIUM CHLORIDE
     Dosage: 2 DOSAGE FORMS A DAY IN 2 SEPARATED DOSES
  15. ALBUTEROL [Concomitant]
     Active Substance: ALBUTEROL
     Dosage: PUFFS. PRIOR TO BEDTIME VIA MDI AND SPACER.
     Route: 055
  16. VITAMIN D3 [Concomitant]
     Active Substance: CHOLECALCIFEROL
  17. KALYDECO [Suspect]
     Active Substance: IVACAFTOR
     Indication: Cystic fibrosis
     Route: 050

REACTIONS (9)
  - Butterfly rash [Unknown]
  - Systemic lupus erythematosus [Unknown]
  - Fungal infection [Unknown]
  - Arthritis [Unknown]
  - Mood swings [Unknown]
  - Emotional disorder [Unknown]
  - Crying [Unknown]
  - Disturbance in social behaviour [Unknown]
  - Drug hypersensitivity [Unknown]
